FAERS Safety Report 8335957-X (Version None)
Quarter: 2012Q2

REPORT INFORMATION
  Report Type: 
  Country: None (occurrence: None)
  Receive Date: 20120504
  Receipt Date: 20120502
  Transmission Date: 20120825
  Serious: No
  Sender: FDA-Public Use
  Company Number: US-PFIZER INC-2012099494

PATIENT
  Sex: Female

DRUGS (1)
  1. SUTENT [Suspect]
     Indication: METASTATIC RENAL CELL CARCINOMA
     Dosage: 50 MG, 1 CAPSULE DAILY, CYCLE 4 WEEKS ON AND 2 WEEKS OFF
     Dates: start: 20120416

REACTIONS (10)
  - CHILLS [None]
  - NAUSEA [None]
  - FATIGUE [None]
  - DYSGEUSIA [None]
  - DIARRHOEA [None]
  - FEELING HOT [None]
  - ENERGY INCREASED [None]
  - ORAL PAIN [None]
  - THERAPEUTIC RESPONSE UNEXPECTED [None]
  - NASOPHARYNGITIS [None]
